FAERS Safety Report 11366878 (Version 1)
Quarter: 2015Q3

REPORT INFORMATION
  Report Type: Spontaneous
  Country: US (occurrence: US)
  Receive Date: 20150811
  Receipt Date: 20150811
  Transmission Date: 20151125
  Serious: No
  Sender: FDA-Public Use
  Company Number: US-ELI_LILLY_AND_COMPANY-US201109000591

PATIENT
  Sex: Male

DRUGS (5)
  1. LISINOPRIL. [Concomitant]
     Active Substance: LISINOPRIL
     Dosage: 10 DF, QD
  2. FENATYL [Concomitant]
     Active Substance: FENTANYL
     Dosage: 160 MG, QD
  3. FISH OIL [Concomitant]
     Active Substance: FISH OIL
     Dosage: 4 DF, QD
  4. HTZ [Concomitant]
     Dosage: 12.5 MG, QD
  5. AXIRON [Suspect]
     Active Substance: TESTOSTERONE
     Dosage: UNK, UNKNOWN

REACTIONS (1)
  - Acrochordon [Unknown]
